FAERS Safety Report 6176024-3 (Version None)
Quarter: 2009Q2

REPORT INFORMATION
  Report Type: 
  Country: None (occurrence: None)
  Receive Date: 20090501
  Receipt Date: 20090420
  Transmission Date: 20091009
  Serious: Yes (Hospitalization)
  Sender: FDA-Public Use
  Company Number: JP-ROCHE-629102

PATIENT
  Age: 42 Year
  Sex: Male

DRUGS (4)
  1. TAMIFLU [Suspect]
     Indication: INFLUENZA
     Route: 048
     Dates: start: 20090413, end: 20090417
  2. DASEN [Suspect]
     Indication: INFLUENZA
     Route: 048
  3. MUCODYNE [Suspect]
     Indication: INFLUENZA
     Route: 048
  4. MARZULENE [Suspect]
     Indication: INFLUENZA
     Route: 048

REACTIONS (3)
  - ABNORMAL BEHAVIOUR [None]
  - AMNESIA [None]
  - MEMORY IMPAIRMENT [None]
